FAERS Safety Report 9086389 (Version 1)
Quarter: 2013Q1

REPORT INFORMATION
  Report Type: Spontaneous
  Country: JP (occurrence: JP)
  Receive Date: 20130131
  Receipt Date: 20130131
  Transmission Date: 20140127
  Serious: Yes (Other)
  Sender: FDA-Public Use
  Company Number: JP-ALLERGAN-1301173US

PATIENT
  Sex: Female

DRUGS (1)
  1. BOTOX [Suspect]
     Indication: PRODUCT USED FOR UNKNOWN INDICATION
     Dosage: UNK UNK, SINGLE
     Route: 030
     Dates: start: 20121214, end: 20121214

REACTIONS (21)
  - Facial spasm [Unknown]
  - Abnormal sensation in eye [Unknown]
  - Eye pain [Unknown]
  - Fatigue [Unknown]
  - Burnout syndrome [Unknown]
  - Lagophthalmos [Unknown]
  - Dry eye [Unknown]
  - Injection site pain [Unknown]
  - Injury corneal [Unknown]
  - Muscle twitching [Unknown]
  - Emotional distress [Unknown]
  - Feeling abnormal [Unknown]
  - Decreased appetite [Unknown]
  - Weight decreased [Unknown]
  - Ocular hyperaemia [Unknown]
  - Eye discharge [Unknown]
  - Lacrimation increased [Unknown]
  - Pyrexia [Unknown]
  - Adenoviral conjunctivitis [Unknown]
  - Decreased immune responsiveness [Unknown]
  - Dyslalia [Unknown]
